FAERS Safety Report 14448337 (Version 1)
Quarter: 2018Q1

REPORT INFORMATION
  Report Type: Spontaneous
  Country: US (occurrence: US)
  Receive Date: 20180126
  Receipt Date: 20180126
  Transmission Date: 20180509
  Serious: Yes (Hospitalization)
  Sender: FDA-Public Use
  Company Number: None

PATIENT
  Age: 14 Year
  Sex: Male
  Weight: 47.25 kg

DRUGS (1)
  1. TAMIFLU [Suspect]
     Active Substance: OSELTAMIVIR PHOSPHATE
     Indication: INFLUENZA
     Dates: start: 20180110, end: 20180111

REACTIONS (8)
  - Gait inability [None]
  - Speech disorder [None]
  - Apparent death [None]
  - Abdominal pain upper [None]
  - Vomiting [None]
  - Dysstasia [None]
  - Pyrexia [None]
  - Confusional state [None]

NARRATIVE: CASE EVENT DATE: 20180111
